FAERS Safety Report 18218799 (Version 3)
Quarter: 2021Q3

REPORT INFORMATION
  Report Type: Spontaneous
  Country: US (occurrence: US)
  Receive Date: 20200901
  Receipt Date: 20210705
  Transmission Date: 20211014
  Serious: Yes (Other)
  Sender: FDA-Public Use
  Company Number: US-INDIVIOR US-INDV-126131-2020

PATIENT
  Age: 37 Year
  Sex: Male

DRUGS (1)
  1. BUPRENORPHINE/NALOXONE TABLET [Suspect]
     Active Substance: BUPRENORPHINE HYDROCHLORIDE\NALOXONE HYDROCHLORIDE
     Indication: DRUG DEPENDENCE
     Dosage: UNK (CRUSHED AND INJECTED)
     Route: 058

REACTIONS (5)
  - Disease progression [Unknown]
  - Substance abuse [Unknown]
  - Testicular cancer metastatic [Unknown]
  - Skin mass [Unknown]
  - Intentional product use issue [Unknown]
